FAERS Safety Report 18763687 (Version 2)
Quarter: 2021Q1

REPORT INFORMATION
  Report Type: Spontaneous
  Country: US (occurrence: US)
  Receive Date: 20210120
  Receipt Date: 20210224
  Transmission Date: 20210419
  Serious: Yes (Other)
  Sender: FDA-Public Use
  Company Number: US-ASTRAZENECA-2021A008580

PATIENT
  Sex: Female
  Weight: 58.5 kg

DRUGS (1)
  1. LYNPARZA [Suspect]
     Active Substance: OLAPARIB
     Indication: OVARIAN EPITHELIAL CANCER
     Route: 048
     Dates: start: 202010

REACTIONS (3)
  - Carbohydrate antigen 125 increased [Not Recovered/Not Resolved]
  - Decreased appetite [Unknown]
  - Blood creatinine increased [Not Recovered/Not Resolved]
